FAERS Safety Report 9124582 (Version 2)
Quarter: 2013Q2

REPORT INFORMATION
  Report Type: Report from Study
  Country: BR (occurrence: BR)
  Receive Date: 20130227
  Receipt Date: 20130502
  Transmission Date: 20140414
  Serious: Yes (Other)
  Sender: FDA-Public Use
  Company Number: PHHY2013BR018579

PATIENT
  Sex: Male

DRUGS (1)
  1. BUFFERIN [Suspect]
     Indication: ANTICOAGULANT THERAPY
     Dosage: 2 DF, DAILY

REACTIONS (3)
  - Cerebrovascular accident [Recovered/Resolved]
  - Sleep apnoea syndrome [Recovered/Resolved]
  - Incorrect drug administration duration [Unknown]
